FAERS Safety Report 14018367 (Version 1)
Quarter: 2017Q3

REPORT INFORMATION
  Report Type: Spontaneous
  Country: US (occurrence: US)
  Receive Date: 20170927
  Receipt Date: 20170927
  Transmission Date: 20171128
  Serious: Yes (Death, Life-Threatening, Hospitalization, Other)
  Sender: FDA-Public Use
  Company Number: None

PATIENT
  Sex: Male
  Weight: 63 kg

DRUGS (1)
  1. PACERONE [Suspect]
     Active Substance: AMIODARONE HYDROCHLORIDE
     Indication: ATRIAL FIBRILLATION
     Dosage: ?          QUANTITY:1 CAPSULE(S);?
     Route: 048
     Dates: start: 20040216, end: 20040801

REACTIONS (6)
  - Oxygen saturation decreased [None]
  - Thrombosis [None]
  - Infection [None]
  - Toxicity to various agents [None]
  - Lung disorder [None]
  - Leg amputation [None]

NARRATIVE: CASE EVENT DATE: 20040801
